FAERS Safety Report 10580305 (Version 1)
Quarter: 2014Q4

REPORT INFORMATION
  Report Type: Spontaneous
  Country: PT (occurrence: PT)
  Receive Date: 20141112
  Receipt Date: 20141112
  Transmission Date: 20150529
  Serious: Yes (Other)
  Sender: FDA-Public Use
  Company Number: ALCN2014PT006323

PATIENT
  Sex: Female

DRUGS (1)
  1. VIGAMOX [Suspect]
     Active Substance: MOXIFLOXACIN HYDROCHLORIDE
     Dosage: 1 DF, PRN
     Route: 047

REACTIONS (3)
  - Drug hypersensitivity [Recovered/Resolved]
  - Eyelids pruritus [Recovered/Resolved]
  - Erythema [Recovered/Resolved]
